FAERS Safety Report 7466335-3 (Version None)
Quarter: 2011Q2

REPORT INFORMATION
  Report Type: 
  Country: None (occurrence: None)
  Receive Date: 20110509
  Receipt Date: 20100730
  Transmission Date: 20111010
  Serious: No
  Sender: FDA-Public Use
  Company Number: US-ALEXION-A201000915

PATIENT
  Sex: Female

DRUGS (6)
  1. SOLIRIS [Suspect]
     Indication: PAROXYSMAL NOCTURNAL HAEMOGLOBINURIA
     Dosage: 600 MG, QW X 4 WEEKS
     Route: 042
     Dates: start: 20100727
  2. PEPCID [Concomitant]
     Dosage: 20 MG, QD
     Route: 048
  3. FOSAMAX [Concomitant]
     Dosage: 70 MG, UNK
     Route: 048
  4. CALCIUM [Concomitant]
     Dosage: 500 MG, BID
     Route: 048
  5. LIPITOR [Concomitant]
     Dosage: 20 MG, QD
     Route: 048
  6. PREDNISONE [Concomitant]
     Dosage: 20 MG, UNK
     Route: 048

REACTIONS (3)
  - NAUSEA [None]
  - NASAL CONGESTION [None]
  - HEADACHE [None]
